FAERS Safety Report 15368749 (Version 1)
Quarter: 2018Q3

REPORT INFORMATION
  Report Type: Report from Study
  Country: None (occurrence: US)
  Receive Date: 20180911
  Receipt Date: 20180911
  Transmission Date: 20181010
  Serious: Yes (Hospitalization, Other)
  Sender: FDA-Public Use
  Company Number: US-ABBVIE-18K-163-2448606-00

PATIENT
  Age: 34 Year
  Sex: Female
  Weight: 118.04 kg

DRUGS (3)
  1. HUMIRA [Suspect]
     Active Substance: ADALIMUMAB
     Route: 058
     Dates: start: 201801, end: 201803
  2. HUMIRA [Suspect]
     Active Substance: ADALIMUMAB
     Route: 058
     Dates: start: 201712, end: 201712
  3. HUMIRA [Suspect]
     Active Substance: ADALIMUMAB
     Indication: HIDRADENITIS
     Route: 058
     Dates: start: 2015, end: 201711

REACTIONS (8)
  - Secondary immunodeficiency [Unknown]
  - Carpal tunnel syndrome [Unknown]
  - Back pain [Unknown]
  - Dehydration [Recovered/Resolved]
  - Hidradenitis [Unknown]
  - Candida infection [Unknown]
  - Mouth haemorrhage [Recovered/Resolved]
  - Menorrhagia [Unknown]

NARRATIVE: CASE EVENT DATE: 2017
